FAERS Safety Report 11436953 (Version 1)
Quarter: 2015Q3

REPORT INFORMATION
  Report Type: Spontaneous
  Country: US (occurrence: US)
  Receive Date: 20150821
  Receipt Date: 20150821
  Transmission Date: 20151125
  Serious: No
  Sender: FDA-Public Use
  Company Number: US-ELI_LILLY_AND_COMPANY-US200702001772

PATIENT
  Age: 58 Year
  Sex: Female

DRUGS (6)
  1. LORTAB [Concomitant]
     Active Substance: ACETAMINOPHEN\HYDROCODONE BITARTRATE
     Indication: BACK PAIN
  2. CYMBALTA [Suspect]
     Active Substance: DULOXETINE HYDROCHLORIDE
     Indication: BACK PAIN
     Dosage: 60 MG, DAILY (1/D)
     Route: 048
     Dates: start: 200606, end: 200702
  3. TRENTAL [Concomitant]
     Active Substance: PENTOXIFYLLINE
     Indication: PERIPHERAL VASCULAR DISORDER
  4. LOPRESSOR [Concomitant]
     Active Substance: METOPROLOL TARTRATE
     Indication: HYPERTENSION
  5. PLETAL [Concomitant]
     Active Substance: CILOSTAZOL
     Indication: PERIPHERAL VASCULAR DISORDER
     Dosage: 50 MG, UNK
  6. REGLAN [Concomitant]
     Active Substance: METOCLOPRAMIDE HYDROCHLORIDE
     Indication: GASTROOESOPHAGEAL REFLUX DISEASE
     Dosage: UNK, AS NEEDED

REACTIONS (3)
  - Alopecia [Recovering/Resolving]
  - Diarrhoea [Recovered/Resolved]
  - Rash [Recovering/Resolving]

NARRATIVE: CASE EVENT DATE: 200611
